FAERS Safety Report 15403593 (Version 1)
Quarter: 2018Q3

REPORT INFORMATION
  Report Type: Spontaneous
  Country: US (occurrence: US)
  Receive Date: 20180919
  Receipt Date: 20180919
  Transmission Date: 20181010
  Serious: Yes (Hospitalization)
  Sender: FDA-Public Use
  Company Number: US-CELGENEUS-USA-20180904329

PATIENT
  Sex: Female
  Weight: 55.39 kg

DRUGS (13)
  1. TRADJENTA [Concomitant]
     Active Substance: LINAGLIPTIN
     Indication: CEREBROVASCULAR ACCIDENT
     Dosage: 5 MILLIGRAM
     Route: 065
  2. ACETAMINOPHEN AND CODEINE [Concomitant]
     Active Substance: ACETAMINOPHEN\CODEINE PHOSPHATE
     Indication: CEREBROVASCULAR ACCIDENT
     Dosage: 300MG?3
     Route: 065
  3. CALCIUM CARBONATE. [Concomitant]
     Active Substance: CALCIUM CARBONATE
     Indication: CEREBROVASCULAR ACCIDENT
     Route: 065
  4. TRESIBA [Concomitant]
     Active Substance: INSULIN DEGLUDEC
     Indication: CEREBROVASCULAR ACCIDENT
     Route: 065
  5. VITAMIN D3 [Concomitant]
     Active Substance: CHOLECALCIFEROL
     Indication: CEREBROVASCULAR ACCIDENT
     Dosage: 1000 IU (INTERNATIONAL UNIT)
     Route: 065
  6. DEXAMETHASONE. [Concomitant]
     Active Substance: DEXAMETHASONE
     Indication: CEREBROVASCULAR ACCIDENT
     Dosage: 4 MILLIGRAM
     Route: 065
  7. AZITHROMYCIN ANHYDROUS. [Concomitant]
     Active Substance: AZITHROMYCIN ANHYDROUS
     Indication: CEREBROVASCULAR ACCIDENT
     Dosage: 500 MILLIGRAM
     Route: 065
  8. BUMETANIDE. [Concomitant]
     Active Substance: BUMETANIDE
     Indication: CEREBROVASCULAR ACCIDENT
     Dosage: 2 MILLIGRAM
     Route: 065
  9. REVLIMID [Suspect]
     Active Substance: LENALIDOMIDE
     Indication: PLASMA CELL MYELOMA
     Dosage: 15 MILLIGRAM
     Route: 048
     Dates: start: 20180625
  10. DONEPEZIL HCL [Concomitant]
     Active Substance: DONEPEZIL HYDROCHLORIDE
     Indication: CEREBROVASCULAR ACCIDENT
     Dosage: 5 MILLIGRAM
     Route: 065
  11. ULORIC [Concomitant]
     Active Substance: FEBUXOSTAT
     Indication: CEREBROVASCULAR ACCIDENT
     Dosage: 40 MILLIGRAM
     Route: 065
  12. PROLIA [Concomitant]
     Active Substance: DENOSUMAB
     Indication: CEREBROVASCULAR ACCIDENT
     Route: 065
  13. ROPINIROLE HCL [Concomitant]
     Active Substance: ROPINIROLE HYDROCHLORIDE
     Indication: CEREBROVASCULAR ACCIDENT
     Dosage: .25 MILLIGRAM
     Route: 065

REACTIONS (1)
  - Cerebrovascular accident [Unknown]

NARRATIVE: CASE EVENT DATE: 2018
